FAERS Safety Report 19213227 (Version 3)
Quarter: 2023Q2

REPORT INFORMATION
  Report Type: Report from Study
  Country: FR (occurrence: FR)
  Receive Date: 20210504
  Receipt Date: 20230421
  Transmission Date: 20230722
  Serious: Yes (Death)
  Sender: FDA-Public Use
  Company Number: FR-PFIZER INC-2021485338

PATIENT

DRUGS (4)
  1. LEUCOVORIN CALCIUM [Suspect]
     Active Substance: LEUCOVORIN CALCIUM
     Indication: Rectal adenocarcinoma
     Dosage: 400 MG/M2, CYCLIC (GIVEN EVERY 14 DAYS FOR SIX CYCLES)
     Route: 042
  2. IRINOTECAN HYDROCHLORIDE [Suspect]
     Active Substance: IRINOTECAN HYDROCHLORIDE
     Indication: Rectal adenocarcinoma
     Dosage: 180 MG/M2, CYCLIC (GIVEN EVERY 14 DAYS FOR SIX CYCLES)
     Route: 042
  3. OXALIPLATIN [Suspect]
     Active Substance: OXALIPLATIN
     Indication: Rectal adenocarcinoma
     Dosage: 85 MG/M2, CYCLIC (GIVEN EVERY 14 DAYS FOR SIX CYCLES)
     Route: 042
  4. FLUOROURACIL [Suspect]
     Active Substance: FLUOROURACIL
     Indication: Rectal adenocarcinoma
     Dosage: 2400 MG/M2, CYCLIC (OVER 46 H INTRAVENOUSLY EVERY 2 WEEKS FOR 6 CYCLES)
     Route: 042

REACTIONS (1)
  - Cardiac disorder [Fatal]
